FAERS Safety Report 8140935-X (Version None)
Quarter: 2012Q1

REPORT INFORMATION
  Report Type: 
  Country: None (occurrence: None)
  Receive Date: 20120214
  Receipt Date: 20120214
  Transmission Date: 20120608
  Serious: Yes (Other)
  Sender: FDA-Public Use
  Company Number: None

PATIENT
  Age: 58 Year
  Sex: Male
  Weight: 108.2 kg

DRUGS (1)
  1. DALFAMPRIDINE [Suspect]
     Indication: MULTIPLE SCLEROSIS
     Dosage: 10 MG BID PO
     Route: 048
     Dates: start: 20110317, end: 20110414

REACTIONS (4)
  - SOMNOLENCE [None]
  - FATIGUE [None]
  - INSOMNIA [None]
  - COGNITIVE DISORDER [None]
